FAERS Safety Report 11597057 (Version 1)
Quarter: 2015Q4

REPORT INFORMATION
  Report Type: Spontaneous
  Country: AU (occurrence: None)
  Receive Date: 20151005
  Receipt Date: 20151005
  Transmission Date: 20160304
  Serious: No
  Sender: FDA-Public Use
  Company Number: None

PATIENT
  Age: 28 Year
  Sex: Female
  Weight: 53 kg

DRUGS (1)
  1. RESOLVE 2% MICONAZOLE EGO [Suspect]
     Active Substance: MICONAZOLE
     Indication: CANDIDA INFECTION
     Route: 067
     Dates: start: 20151001, end: 20151001

REACTIONS (5)
  - Haemorrhage [None]
  - Burning sensation [None]
  - Vaginal disorder [None]
  - Fatigue [None]
  - Vulvovaginal swelling [None]

NARRATIVE: CASE EVENT DATE: 20151001
